FAERS Safety Report 24932969 (Version 4)
Quarter: 2025Q2

REPORT INFORMATION
  Report Type: Spontaneous
  Country: US (occurrence: US)
  Receive Date: 20250206
  Receipt Date: 20250624
  Transmission Date: 20250717
  Serious: Yes (Hospitalization, Other)
  Sender: AUROBINDO
  Company Number: US-AUROBINDO-AUR-APL-2025-006492

PATIENT
  Age: 63 Year
  Sex: Male
  Weight: 122.4 kg

DRUGS (14)
  1. DOCETAXEL [Suspect]
     Active Substance: DOCETAXEL
     Indication: Product used for unknown indication
     Route: 042
     Dates: start: 20240410, end: 20240410
  2. DOCETAXEL [Suspect]
     Active Substance: DOCETAXEL
     Route: 042
     Dates: start: 20241120, end: 20241120
  3. PREDNISONE [Suspect]
     Active Substance: PREDNISONE
     Indication: Hormone-refractory prostate cancer
     Dosage: 5 MILLIGRAM, ONCE A DAY
     Route: 048
     Dates: start: 20240410, end: 20241230
  4. PREDNISONE [Suspect]
     Active Substance: PREDNISONE
     Dosage: 60 MILLIGRAM, ONCE A DAY (CYCLE 11, DAY 15)
     Route: 048
     Dates: start: 20241224
  5. PREDNISONE [Suspect]
     Active Substance: PREDNISONE
     Dosage: 60 MILLIGRAM, ONCE A DAY
     Route: 048
     Dates: start: 20241231, end: 20241231
  6. LORIGERLIMAB [Suspect]
     Active Substance: LORIGERLIMAB
     Indication: Hormone-refractory prostate cancer
     Route: 042
     Dates: start: 20240410, end: 20240410
  7. LORIGERLIMAB [Suspect]
     Active Substance: LORIGERLIMAB
     Route: 042
     Dates: start: 20241210, end: 20241210
  8. LORIGERLIMAB [Suspect]
     Active Substance: LORIGERLIMAB
     Indication: Hormone-refractory prostate cancer
     Route: 042
     Dates: start: 20240410, end: 20240410
  9. LORIGERLIMAB [Suspect]
     Active Substance: LORIGERLIMAB
     Route: 042
     Dates: start: 20241210, end: 20241210
  10. ELIQUIS [Concomitant]
     Active Substance: APIXABAN
     Indication: Product used for unknown indication
     Route: 065
     Dates: start: 20240612
  11. LIPITOR [Concomitant]
     Active Substance: ATORVASTATIN CALCIUM
     Indication: Product used for unknown indication
     Route: 065
     Dates: start: 20230418
  12. FLEXERIL [Concomitant]
     Active Substance: CYCLOBENZAPRINE HYDROCHLORIDE
     Indication: Product used for unknown indication
     Route: 065
     Dates: start: 20241205
  13. GLUCOPHAGE XR [Concomitant]
     Active Substance: METFORMIN HYDROCHLORIDE
     Indication: Product used for unknown indication
     Route: 065
     Dates: start: 20240930
  14. ATARAX [Concomitant]
     Active Substance: HYDROXYZINE HYDROCHLORIDE
     Indication: Product used for unknown indication
     Route: 065
     Dates: start: 20241206

REACTIONS (4)
  - Hypoxia [Recovered/Resolved]
  - Hypotension [Recovered/Resolved]
  - Pyrexia [Recovered/Resolved]
  - Adrenal insufficiency [Not Recovered/Not Resolved]

NARRATIVE: CASE EVENT DATE: 20241212
